FAERS Safety Report 9415738 (Version 2)
Quarter: 2014Q1

REPORT INFORMATION
  Report Type: Spontaneous
  Country: FR (occurrence: FR)
  Receive Date: 20130723
  Receipt Date: 20140228
  Transmission Date: 20141002
  Serious: Yes (Hospitalization)
  Sender: FDA-Public Use
  Company Number: FR-PFIZER INC-2013168082

PATIENT
  Age: 31 Year
  Sex: Female

DRUGS (3)
  1. FARMORUBICINE [Suspect]
     Indication: BREAST CANCER
     Dosage: 500 ML, UNK
     Route: 042
     Dates: start: 20130530, end: 20130530
  2. ENDOXAN [Concomitant]
     Indication: BREAST CANCER
  3. FLUOROURACIL [Concomitant]
     Indication: BREAST CANCER

REACTIONS (6)
  - Extravasation [Unknown]
  - Drug administration error [Recovered/Resolved]
  - Chest pain [Recovered/Resolved]
  - Pleural effusion [Recovered/Resolved with Sequelae]
  - Disease progression [Unknown]
  - Breast cancer [Unknown]
